FAERS Safety Report 7743653-2 (Version None)
Quarter: 2011Q3

REPORT INFORMATION
  Report Type: 
  Country: None (occurrence: None)
  Receive Date: 20110912
  Receipt Date: 20110906
  Transmission Date: 20111222
  Serious: Yes (Hospitalization, Disabling, Other)
  Sender: FDA-Public Use
  Company Number: US-MERCK-1108USA00181

PATIENT
  Age: 72 Year
  Sex: Female

DRUGS (3)
  1. CYANOCOBALAMIN [Concomitant]
     Route: 065
  2. FOSAMAX [Suspect]
     Indication: OSTEOPOROSIS
     Route: 048
     Dates: start: 20000101, end: 20090701
  3. CENTRUM SILVER [Concomitant]
     Route: 065

REACTIONS (14)
  - ANXIETY [None]
  - LOW TURNOVER OSTEOPATHY [None]
  - TOOTH DISORDER [None]
  - FEMUR FRACTURE [None]
  - ASTHMA [None]
  - OSTEOPOROSIS [None]
  - SKIN CANCER [None]
  - GASTROOESOPHAGEAL REFLUX DISEASE [None]
  - CALCIUM DEFICIENCY [None]
  - PNEUMONIA [None]
  - BLOOD CHOLESTEROL INCREASED [None]
  - STRESS FRACTURE [None]
  - ADVERSE EVENT [None]
  - GASTRITIS [None]
